FAERS Safety Report 10348987 (Version 1)
Quarter: 2014Q3

REPORT INFORMATION
  Report Type: Spontaneous
  Country: US (occurrence: US)
  Receive Date: 20140729
  Receipt Date: 20140729
  Transmission Date: 20150326
  Serious: No
  Sender: FDA-Public Use
  Company Number: US-BAUSCH-BL-2013-004229

PATIENT
  Age: 60 Year
  Sex: Female
  Weight: 99.88 kg

DRUGS (2)
  1. OPCON-A [Suspect]
     Active Substance: NAPHAZOLINE HYDROCHLORIDE\PHENIRAMINE MALEATE
     Indication: PRODUCT USED FOR UNKNOWN INDICATION
     Dosage: ONE DROP INTO RIGHT EYE ONCE
     Route: 047
     Dates: start: 20130712, end: 20130712
  2. OPCON-A [Suspect]
     Active Substance: NAPHAZOLINE HYDROCHLORIDE\PHENIRAMINE MALEATE
     Dosage: ONE DROP INTO LEFT EYE ONCE
     Route: 047
     Dates: start: 20130712, end: 20130712

REACTIONS (1)
  - Mydriasis [Not Recovered/Not Resolved]

NARRATIVE: CASE EVENT DATE: 20130712
